FAERS Safety Report 10121026 (Version 1)
Quarter: 2014Q2

REPORT INFORMATION
  Report Type: Spontaneous
  Country: US (occurrence: US)
  Receive Date: 20140425
  Receipt Date: 20140425
  Transmission Date: 20141212
  Serious: Yes (Hospitalization)
  Sender: FDA-Public Use
  Company Number: US-ABBVIE-14P-163-1227192-00

PATIENT
  Age: 49 Year
  Sex: Female
  Weight: 95.34 kg

DRUGS (6)
  1. SYNTHROID 50MG [Suspect]
     Indication: HYPOTHYROIDISM
     Dates: start: 2012, end: 201210
  2. SYNTHROID 150MG [Suspect]
     Indication: HYPOTHYROIDISM
     Dates: start: 20131126, end: 20140117
  3. SYNTHROID 137MG [Suspect]
     Indication: HYPOTHYROIDISM
     Dates: start: 20140117, end: 20140310
  4. SYNTHROID 112MG [Suspect]
     Indication: HYPOTHYROIDISM
     Dates: start: 20140310
  5. ATORVASTATIN [Concomitant]
     Indication: BLOOD CHOLESTEROL INCREASED
  6. VENLAFAXINE [Concomitant]
     Indication: HOT FLUSH

REACTIONS (8)
  - Back pain [Recovering/Resolving]
  - Dyspnoea [Recovering/Resolving]
  - Peripheral swelling [Recovering/Resolving]
  - Atrial fibrillation [Not Recovered/Not Resolved]
  - Therapy cessation [Recovered/Resolved]
  - Blood thyroid stimulating hormone increased [Recovered/Resolved]
  - Blood thyroid stimulating hormone decreased [Not Recovered/Not Resolved]
  - Prescribed overdose [Recovering/Resolving]
